FAERS Safety Report 4565264-2 (Version None)
Quarter: 2005Q1

REPORT INFORMATION
  Report Type: 
  Country: None (occurrence: None)
  Receive Date: 20050131
  Receipt Date: 20050119
  Transmission Date: 20050727
  Serious: Yes (Hospitalization)
  Sender: FDA-Public Use
  Company Number: JP-ROCHE-393005

PATIENT
  Age: 50 Year
  Sex: Male

DRUGS (2)
  1. PEGASYS [Suspect]
     Route: 058
     Dates: start: 20041116, end: 20041224
  2. PEGASYS [Suspect]
     Route: 058
     Dates: start: 20050119

REACTIONS (2)
  - PLEURAL EFFUSION [None]
  - PLEURISY [None]
